FAERS Safety Report 14660605 (Version 5)
Quarter: 2018Q2

REPORT INFORMATION
  Report Type: Spontaneous
  Country: JP (occurrence: JP)
  Receive Date: 20180320
  Receipt Date: 20180628
  Transmission Date: 20180711
  Serious: Yes (Other)
  Sender: FDA-Public Use
  Company Number: JP-PFIZER INC-2018112034

PATIENT
  Age: 65 Year
  Sex: Female
  Weight: 56.1 kg

DRUGS (3)
  1. FASLODEX [Concomitant]
     Active Substance: FULVESTRANT
     Dosage: 500 MG EACH TIME
     Dates: start: 20180215, end: 20180301
  2. FASLODEX [Concomitant]
     Active Substance: FULVESTRANT
     Dosage: 500 MG EACH TIME
     Dates: start: 20180329
  3. IBRANCE [Suspect]
     Active Substance: PALBOCICLIB
     Indication: BREAST CANCER RECURRENT
     Dosage: 125 MG, CYCLIC (DAILY 3-WEEK ON, 1-WEEK OFF)
     Route: 048
     Dates: start: 20180215, end: 20180307

REACTIONS (4)
  - C-reactive protein increased [Recovered/Resolved]
  - Skin haemorrhage [Unknown]
  - Deep vein thrombosis [Recovering/Resolving]
  - Platelet count decreased [Recovered/Resolved]

NARRATIVE: CASE EVENT DATE: 20180312
